APPROVED DRUG PRODUCT: DESLORATADINE AND PSEUDOEPHEDRINE SULFATE 24 HOUR
Active Ingredient: DESLORATADINE; PSEUDOEPHEDRINE SULFATE
Strength: 5MG;240MG
Dosage Form/Route: TABLET, EXTENDED RELEASE;ORAL
Application: A078366 | Product #001
Applicant: DR REDDYS LABORATORIES LTD
Approved: Apr 26, 2011 | RLD: No | RS: Yes | Type: RX